FAERS Safety Report 11871688 (Version 1)
Quarter: 2015Q4

REPORT INFORMATION
  Report Type: Spontaneous
  Country: NL (occurrence: NL)
  Receive Date: 20151228
  Receipt Date: 20151228
  Transmission Date: 20160305
  Serious: Yes (Other)
  Sender: FDA-Public Use
  Company Number: NL-JNJFOC-20151122736

PATIENT
  Age: 11 Year
  Sex: Male
  Weight: 27 kg

DRUGS (2)
  1. TACROLIMUS. [Suspect]
     Active Substance: TACROLIMUS
     Indication: PRODUCT USED FOR UNKNOWN INDICATION
     Route: 065
  2. HALDOL [Suspect]
     Active Substance: HALOPERIDOL
     Indication: DELIRIUM
     Route: 042

REACTIONS (5)
  - Extrapyramidal disorder [Recovered/Resolved]
  - Somnolence [Unknown]
  - Hypertonia [Recovered/Resolved]
  - Dystonia [Recovered/Resolved]
  - Locked-in syndrome [Recovered/Resolved]

NARRATIVE: CASE EVENT DATE: 20150226
